FAERS Safety Report 7438865-1 (Version None)
Quarter: 2011Q2

REPORT INFORMATION
  Report Type: 
  Country: None (occurrence: None)
  Receive Date: 20110426
  Receipt Date: 20110418
  Transmission Date: 20111010
  Serious: Yes (Other)
  Sender: FDA-Public Use
  Company Number: US-MERCK-1104USA02658

PATIENT
  Sex: Female

DRUGS (3)
  1. FOSAMAX [Suspect]
     Indication: PROPHYLAXIS
     Route: 048
     Dates: start: 19990401, end: 20100301
  2. FOSAMAX [Suspect]
     Route: 048
  3. FOSAMAX PLUS D [Suspect]
     Indication: PROPHYLAXIS
     Route: 048

REACTIONS (2)
  - FEMUR FRACTURE [None]
  - LOW TURNOVER OSTEOPATHY [None]
